FAERS Safety Report 14665728 (Version 4)
Quarter: 2018Q2

REPORT INFORMATION
  Report Type: Spontaneous
  Country: RU (occurrence: RU)
  Receive Date: 20180321
  Receipt Date: 20180503
  Transmission Date: 20180711
  Serious: Yes (Hospitalization, Other)
  Sender: FDA-Public Use
  Company Number: RU-ASTRAZENECA-2018SE33369

PATIENT
  Age: 65 Year
  Sex: Female
  Weight: 80 kg

DRUGS (4)
  1. FORXIGA [Suspect]
     Active Substance: DAPAGLIFLOZIN
     Indication: TYPE 2 DIABETES MELLITUS
     Route: 048
     Dates: start: 201703
  2. DIABETON MB [Concomitant]
     Active Substance: GLICLAZIDE
  3. THROMBO ASS [Concomitant]
     Active Substance: ASPIRIN
  4. METFORMIN [Concomitant]
     Active Substance: METFORMIN HYDROCHLORIDE

REACTIONS (5)
  - Diverticulitis [Unknown]
  - Nasopharyngitis [Recovered/Resolved]
  - Diverticular perforation [Unknown]
  - Cataract [Unknown]
  - Abdominal abscess [Unknown]

NARRATIVE: CASE EVENT DATE: 201708
